FAERS Safety Report 24995545 (Version 2)
Quarter: 2025Q1

REPORT INFORMATION
  Report Type: Report from Study
  Country: KR (occurrence: KR)
  Receive Date: 20250221
  Receipt Date: 20250310
  Transmission Date: 20250408
  Serious: Yes (Hospitalization, Other)
  Sender: PFIZER
  Company Number: KR-ONO-2024KR010174

PATIENT
  Age: 64 Year
  Sex: Male
  Weight: 58.5 kg

DRUGS (9)
  1. BRAFTOVI [Suspect]
     Active Substance: ENCORAFENIB
     Indication: Colon cancer
     Dosage: 300 MG, EVERYDAY
     Route: 048
     Dates: start: 20240104
  2. BRAFTOVI [Suspect]
     Active Substance: ENCORAFENIB
     Dosage: 300 MG, EVERYDAY
     Route: 048
     Dates: start: 20240508
  3. CETUXIMAB [Concomitant]
     Active Substance: CETUXIMAB
     Indication: Colon cancer
     Route: 042
     Dates: start: 20240104, end: 20240104
  4. CETUXIMAB [Concomitant]
     Active Substance: CETUXIMAB
     Dosage: 400 MG, QW
     Route: 042
     Dates: start: 20240118, end: 20240729
  5. BORYUNG ASTRIX [Concomitant]
  6. CARVEDILOL [Concomitant]
     Active Substance: CARVEDILOL
  7. KANARB [Concomitant]
  8. EZET [Concomitant]
  9. SUVAST [ATORVASTATIN CALCIUM] [Concomitant]

REACTIONS (2)
  - Septic shock [Recovered/Resolved]
  - Acute kidney injury [Recovered/Resolved]

NARRATIVE: CASE EVENT DATE: 20240426
